FAERS Safety Report 10084452 (Version 2)
Quarter: 2014Q2

REPORT INFORMATION
  Report Type: Spontaneous
  Country: US (occurrence: US)
  Receive Date: 20140417
  Receipt Date: 20140429
  Transmission Date: 20141212
  Serious: No
  Sender: FDA-Public Use
  Company Number: US-009507513-1404USA008730

PATIENT
  Sex: Female
  Weight: 77.98 kg

DRUGS (1)
  1. ZEGERID OTC CAPSULES [Suspect]
     Indication: GASTROOESOPHAGEAL REFLUX DISEASE
     Dosage: 20 MG, BID
     Route: 048
     Dates: start: 1995, end: 20140413

REACTIONS (3)
  - Overdose [Unknown]
  - Inappropriate schedule of drug administration [Unknown]
  - Product physical issue [Unknown]
